FAERS Safety Report 9119119 (Version 3)
Quarter: 2013Q1

REPORT INFORMATION
  Report Type: Spontaneous
  Country: AR (occurrence: AR)
  Receive Date: 20130226
  Receipt Date: 20130319
  Transmission Date: 20140127
  Serious: Yes (Other)
  Sender: FDA-Public Use
  Company Number: PHHY2013AR018199

PATIENT
  Sex: Female

DRUGS (3)
  1. DIOVAN [Suspect]
     Indication: HYPERTENSION
     Dosage: 2 DF(80MG), 2 PER DAY
     Route: 048
     Dates: start: 2001
  2. DIOVAN [Suspect]
     Dosage: 2 DF(160MG), 2 PER DAY
     Route: 048
     Dates: end: 20130222
  3. NEURYL [Concomitant]
     Indication: SLEEP DISORDER
     Dosage: 1 UKN, PER DAY
     Route: 048
     Dates: start: 20130221

REACTIONS (9)
  - Intervertebral disc protrusion [Not Recovered/Not Resolved]
  - Intervertebral disc space narrowing [Not Recovered/Not Resolved]
  - Osteoarthritis [Not Recovered/Not Resolved]
  - Gastritis [Recovered/Resolved]
  - Abdominal discomfort [Recovered/Resolved]
  - Emotional disorder [Unknown]
  - Drug intolerance [Unknown]
  - Hypertension [Not Recovered/Not Resolved]
  - Musculoskeletal pain [Recovered/Resolved]
